FAERS Safety Report 9502833 (Version 1)
Quarter: 2013Q1

REPORT INFORMATION
  Report Type: Spontaneous
  Country: US (occurrence: None)
  Receive Date: 20130225
  Receipt Date: 20130225
  Transmission Date: 20140127
  Serious: No
  Sender: FDA-Public Use
  Company Number: 365128

PATIENT
  Age: 56 Year
  Sex: Female

DRUGS (5)
  1. VICTOZA (LIRAGLUTIDE) SOLUTION FOR INJECTION [Suspect]
     Indication: TYPE 2 DIABETES MELLITUS
     Route: 058
     Dates: start: 20121023
  2. BLACK COHOSH (CIMICIFUGA RACEMOSA) [Concomitant]
  3. CARVEDILOL [Concomitant]
  4. LOSARTAN POTASSIUM W/ HYDROCHLOROTHIAZIDE (HYDROCHLOROTHIAZIDE, LOSARTAN POTASSIUM) [Concomitant]
  5. METFORMIN (METFORMIN) [Concomitant]

REACTIONS (3)
  - Hot flush [None]
  - Hyperhidrosis [None]
  - Blood glucose increased [None]
